FAERS Safety Report 10501953 (Version 1)
Quarter: 2014Q4

REPORT INFORMATION
  Report Type: Spontaneous
  Country: US (occurrence: US)
  Receive Date: 20141007
  Receipt Date: 20141007
  Transmission Date: 20150528
  Serious: Yes (Other)
  Sender: FDA-Public Use
  Company Number: US-ELI_LILLY_AND_COMPANY-US201409010669

PATIENT
  Sex: Female

DRUGS (3)
  1. CYRAMZA [Suspect]
     Active Substance: RAMUCIRUMAB
     Indication: OESOPHAGEAL CARCINOMA
     Dosage: 8 MG/KG, EVERY TWO WEEKS
     Route: 065
     Dates: start: 201406
  2. TAXOL [Concomitant]
     Active Substance: PACLITAXEL
  3. SYNTHROID [Concomitant]
     Active Substance: LEVOTHYROXINE SODIUM

REACTIONS (6)
  - Dyspnoea [Unknown]
  - Tremor [Unknown]
  - Fatigue [Unknown]
  - Malignant neoplasm progression [Unknown]
  - Vision blurred [Recovered/Resolved]
  - Confusional state [Unknown]
